FAERS Safety Report 16472583 (Version 3)
Quarter: 2019Q3

REPORT INFORMATION
  Report Type: Spontaneous
  Country: PT (occurrence: PT)
  Receive Date: 20190625
  Receipt Date: 20190806
  Transmission Date: 20191004
  Serious: Yes (Hospitalization, Other)
  Sender: FDA-Public Use
  Company Number: PT-009507513-1906PRT006720

PATIENT
  Age: 46 Year
  Sex: Male
  Weight: 83 kg

DRUGS (4)
  1. HARVONI [Suspect]
     Active Substance: LEDIPASVIR\SOFOSBUVIR
     Indication: CHRONIC HEPATITIS C
     Dosage: 1 DOSAGE FORM
     Route: 048
     Dates: start: 20150923, end: 20151217
  2. DIAZEPAM. [Concomitant]
     Active Substance: DIAZEPAM
  3. METHADONE HYDROCHLORIDE. [Concomitant]
     Active Substance: METHADONE HYDROCHLORIDE
  4. RIBAVIRIN. [Suspect]
     Active Substance: RIBAVIRIN
     Indication: CHRONIC HEPATITIS C
     Dosage: UNK
     Route: 065
     Dates: start: 2015

REACTIONS (10)
  - Laryngeal ulceration [Unknown]
  - Vocal cord disorder [Unknown]
  - Drug ineffective [Unknown]
  - Oral tuberculosis [Recovered/Resolved]
  - Lymphadenopathy [Unknown]
  - Dysphonia [Not Recovered/Not Resolved]
  - Hepatitis C [Unknown]
  - Laryngeal disorder [Recovered/Resolved]
  - Dysphonia [Unknown]
  - Weight decreased [Unknown]

NARRATIVE: CASE EVENT DATE: 201805
